FAERS Safety Report 5302157-7 (Version None)
Quarter: 2007Q2

REPORT INFORMATION
  Report Type: 
  Country: None (occurrence: None)
  Receive Date: 20070413
  Receipt Date: 20070402
  Transmission Date: 20071010
  Serious: Yes (Other)
  Sender: FDA-Public Use
  Company Number: B0465379A

PATIENT
  Age: 63 Year
  Sex: Female

DRUGS (2)
  1. LITHIUM SALT (FORMULATION UNKNOWN) (GENERIC)  (LITHIUM SALT) [Suspect]
     Indication: BIPOLAR DISORDER
  2. FLUOXETINE [Concomitant]

REACTIONS (10)
  - AORTIC VALVE DISEASE [None]
  - DEPRESSION [None]
  - HYPERSOMNIA [None]
  - MANIA [None]
  - OEDEMA [None]
  - PULMONARY ARTERY DILATATION [None]
  - PULMONARY HYPERTENSION [None]
  - TACHYCARDIA [None]
  - TRICUSPID VALVE INCOMPETENCE [None]
  - VENTRICULAR HYPERTROPHY [None]
